FAERS Safety Report 5866580-4 (Version None)
Quarter: 2008Q3

REPORT INFORMATION
  Report Type: 
  Country: None (occurrence: None)
  Receive Date: 20080825
  Receipt Date: 20080811
  Transmission Date: 20090109
  Serious: Yes (Other)
  Sender: FDA-Public Use
  Company Number: GB-1167042

PATIENT

DRUGS (5)
  1. CHLORAMPHENICOL [Suspect]
     Dosage: OPHTHALMIC
     Route: 047
  2. POVIDONE IODINE [Suspect]
     Dosage: OPHTHALMIC
     Route: 047
  3. AMETHOCAINE (TETRACAINE HYDROCHLORIDE) [Concomitant]
  4. LIGNOCAINE (LIDOCAINE HYDROCHLORIDE) [Concomitant]
  5. TRIAMCINOLONE ACETONIDE [Concomitant]

REACTIONS (2)
  - ENDOPHTHALMITIS [None]
  - VISUAL ACUITY REDUCED [None]
